FAERS Safety Report 13362901 (Version 1)
Quarter: 2017Q1

REPORT INFORMATION
  Report Type: Spontaneous
  Country: US (occurrence: US)
  Receive Date: 20170322
  Receipt Date: 20170322
  Transmission Date: 20170429
  Serious: Yes (Life-Threatening, Other)
  Sender: FDA-Public Use
  Company Number: None

PATIENT
  Age: 44 Year
  Sex: Female
  Weight: 61.2 kg

DRUGS (4)
  1. MONTELUKAST [Suspect]
     Active Substance: MONTELUKAST SODIUM
     Indication: SEASONAL ALLERGY
     Dosage: ?          QUANTITY:1 TABLET(S);?
     Route: 048
     Dates: start: 20170321, end: 20170321
  2. FLUTICASONE. [Concomitant]
     Active Substance: FLUTICASONE
  3. MUCINEX [Concomitant]
     Active Substance: GUAIFENESIN
  4. ZRYTEC [Concomitant]

REACTIONS (8)
  - Nausea [None]
  - Diarrhoea [None]
  - Vomiting [None]
  - Immobile [None]
  - Dyspnoea [None]
  - Abdominal pain upper [None]
  - Dizziness [None]
  - Mental impairment [None]

NARRATIVE: CASE EVENT DATE: 20170321
